FAERS Safety Report 9893119 (Version 3)
Quarter: 2014Q1

REPORT INFORMATION
  Report Type: Spontaneous
  Country: AR (occurrence: AR)
  Receive Date: 20140213
  Receipt Date: 20140314
  Transmission Date: 20141002
  Serious: Yes (Hospitalization, Other)
  Sender: FDA-Public Use
  Company Number: AR-AMGEN-ARGSP2013068981

PATIENT
  Sex: Male

DRUGS (1)
  1. ENBREL [Suspect]
     Indication: PRODUCT USED FOR UNKNOWN INDICATION
     Dosage: 50 MG, WEEKLY
     Route: 064
     Dates: start: 20120509, end: 201305

REACTIONS (7)
  - Premature baby [Recovering/Resolving]
  - Low birth weight baby [Recovering/Resolving]
  - Vomiting [Recovered/Resolved]
  - Foetal growth restriction [Recovering/Resolving]
  - Nosocomial infection [Recovered/Resolved]
  - Anaemia [Recovering/Resolving]
  - Foetal exposure during pregnancy [Recovering/Resolving]
